FAERS Safety Report 10736027 (Version 1)
Quarter: 2015Q1

REPORT INFORMATION
  Report Type: Spontaneous
  Country: CN (occurrence: None)
  Receive Date: 20150121
  Receipt Date: 20150121
  Transmission Date: 20150721
  Serious: Yes (Hospitalization)
  Sender: FDA-Public Use
  Company Number: NSR_01752_2015

PATIENT
  Age: 56 Year
  Sex: Female

DRUGS (5)
  1. METOCLOPRAMIDE (METOCLOPRAMIDE) [Suspect]
     Active Substance: METOCLOPRAMIDE
     Indication: NAUSEA
     Route: 048
     Dates: start: 20031121
  2. METOCLOPRAMIDE (METOCLOPRAMIDE) [Suspect]
     Active Substance: METOCLOPRAMIDE
     Indication: KLEBSIELLA INFECTION
     Route: 048
     Dates: start: 20031121
  3. HYPOGLYCEMIC AGENTS [Concomitant]
  4. CONTINUOUS AMBULATORY PERITONEAL DIALYSIS [Concomitant]
  5. METOCLOPRAMIDE (METOCLOPRAMIDE) [Suspect]
     Active Substance: METOCLOPRAMIDE
     Indication: VOMITING
     Route: 048
     Dates: start: 20031121

REACTIONS (10)
  - Grimacing [None]
  - Parkinsonism [None]
  - Anaemia [None]
  - Balance disorder [None]
  - Blood glucose increased [None]
  - Renal impairment [None]
  - Chorea [None]
  - Dyskinesia [None]
  - Dystonia [None]
  - Oromandibular dystonia [None]

NARRATIVE: CASE EVENT DATE: 20031201
